FAERS Safety Report 10873922 (Version 1)
Quarter: 2015Q1

REPORT INFORMATION
  Report Type: Spontaneous
  Country: JP (occurrence: JP)
  Receive Date: 20150227
  Receipt Date: 20150227
  Transmission Date: 20150721
  Serious: Yes (Death)
  Sender: FDA-Public Use
  Company Number: JP-BAYER-2015-022421

PATIENT
  Age: 71 Year
  Sex: Male
  Weight: 58 kg

DRUGS (14)
  1. LYRICA [Concomitant]
     Active Substance: PREGABALIN
     Indication: NEURALGIA
     Dosage: DAILY DOSE 150 MG
     Route: 048
     Dates: start: 20101105, end: 20131212
  2. AZULFIDINE [Concomitant]
     Active Substance: SULFASALAZINE
     Indication: RHEUMATOID ARTHRITIS
     Dosage: DAILY DOSE 500 MG
     Route: 048
     Dates: start: 20130614, end: 20131212
  3. NEXAVAR [Suspect]
     Active Substance: SORAFENIB
     Indication: HEPATOCELLULAR CARCINOMA
     Dosage: 400 MG DAILY
     Route: 048
     Dates: start: 20120706, end: 20120711
  4. NEXAVAR [Suspect]
     Active Substance: SORAFENIB
     Indication: HEPATOCELLULAR CARCINOMA
     Dosage: 600 MG DAILY
     Route: 048
     Dates: start: 20120712, end: 20121024
  5. NEXAVAR [Suspect]
     Active Substance: SORAFENIB
     Indication: HEPATOCELLULAR CARCINOMA
     Dosage: 400 MG DAILY
     Route: 048
     Dates: start: 20130709, end: 20131212
  6. PYDOXAL [Concomitant]
     Active Substance: PYRIDOXAL
     Indication: ADVERSE REACTION
     Dosage: DAILY DOSE 30 MG
     Route: 048
     Dates: start: 20120706, end: 20130708
  7. MIYA-BM [Concomitant]
     Active Substance: CLOSTRIDIUM BUTYRICUM SPORES STRAIN M-55
     Indication: DIARRHOEA
     Dosage: DAILY DOSE 60 MG
     Route: 048
     Dates: start: 20121120, end: 20131212
  8. PYDOXAL [Concomitant]
     Active Substance: PYRIDOXAL
     Indication: ADVERSE REACTION
     Dosage: 30 MG, Q2WK
     Route: 048
     Dates: start: 20130709, end: 20131212
  9. LIVACT [Concomitant]
     Active Substance: AMINO ACIDS
     Indication: HEPATIC CIRRHOSIS
     Dosage: DAILY DOSE 12.4499998 G
     Route: 048
     Dates: start: 20060309, end: 20131212
  10. KINEDAK [Concomitant]
     Active Substance: EPALRESTAT
     Indication: DIABETIC NEUROPATHY
     Dosage: DAILY DOSE 150 MG
     Route: 048
     Dates: start: 20050712, end: 20131212
  11. ZYLORIC [Concomitant]
     Active Substance: ALLOPURINOL
     Indication: HYPERURICAEMIA
     Dosage: DAILY DOSE 100 MG
     Route: 048
     Dates: start: 20120709, end: 20131212
  12. LIVACT [Concomitant]
     Active Substance: AMINO ACIDS
     Indication: HYPOALBUMINAEMIA
  13. NEXAVAR [Suspect]
     Active Substance: SORAFENIB
     Indication: HEPATOCELLULAR CARCINOMA
     Dosage: 400 MG DAILY
     Route: 048
     Dates: start: 20121025, end: 20130708
  14. CONIEL [Concomitant]
     Active Substance: BENIDIPINE HYDROCHLORIDE
     Indication: HYPERTENSION
     Dosage: DAILY DOSE 4 MG
     Route: 048
     Dates: start: 20130517, end: 20131212

REACTIONS (4)
  - Cardio-respiratory arrest [Fatal]
  - Palmar-plantar erythrodysaesthesia syndrome [None]
  - Brain stem haemorrhage [Fatal]
  - Diarrhoea [None]

NARRATIVE: CASE EVENT DATE: 20131213
